FAERS Safety Report 25191452 (Version 1)
Quarter: 2025Q2

REPORT INFORMATION
  Report Type: Spontaneous
  Country: US (occurrence: None)
  Receive Date: 20250411
  Receipt Date: 20250411
  Transmission Date: 20250717
  Serious: Yes (Hospitalization)
  Sender: FDA-CTU
  Company Number: None

PATIENT
  Age: 47 Year
  Sex: Female
  Weight: 60.8 kg

DRUGS (1)
  1. ENFORTUMAB VEDOTIN [Suspect]
     Active Substance: ENFORTUMAB VEDOTIN
     Indication: Colon cancer
     Dates: start: 20250404

REACTIONS (8)
  - Pleural effusion [None]
  - Nausea [None]
  - Dyspnoea [None]
  - Chest pain [None]
  - Acute kidney injury [None]
  - Sinus tachycardia [None]
  - Pneumothorax [None]
  - Ascites [None]

NARRATIVE: CASE EVENT DATE: 20250410
